FAERS Safety Report 5250111-6 (Version None)
Quarter: 2007Q1

REPORT INFORMATION
  Report Type: 
  Country: None (occurrence: None)
  Receive Date: 20070228
  Receipt Date: 20060403
  Transmission Date: 20070707
  Serious: No
  Sender: FDA-Public Use
  Company Number: US-GLAXOSMITHKLINE-A0592688A

PATIENT
  Age: 25 Year
  Sex: Female

DRUGS (5)
  1. LAMICTAL [Suspect]
     Indication: BIPOLAR DISORDER
     Dosage: 300MG PER DAY
     Route: 048
  2. CELEXA [Concomitant]
  3. BIRTH CONTROL [Concomitant]
  4. SEROQUEL [Concomitant]
  5. ADDERALL 10 [Concomitant]

REACTIONS (2)
  - DRUG INTERACTION [None]
  - MICTURITION URGENCY [None]
